FAERS Safety Report 21774863 (Version 1)
Quarter: 2022Q4

REPORT INFORMATION
  Report Type: Spontaneous
  Country: US (occurrence: US)
  Receive Date: 20221224
  Receipt Date: 20221224
  Transmission Date: 20230112
  Serious: Yes (Other)
  Sender: FDA-Public Use
  Company Number: US-drreddys-SPO/USA/22/0158366

PATIENT
  Age: 15 Year
  Sex: Female

DRUGS (1)
  1. ZENATANE [Suspect]
     Active Substance: ISOTRETINOIN
     Indication: Acne
     Dosage: RMA ISSUE DATE: 06 SEPTEMBER 2022, 01:19:57 PM, 07 OCTOBER 2022, 01:29:16 PM; 08 NOVEMBER 2022, 08:0

REACTIONS (1)
  - Depressive symptom [Unknown]
